FAERS Safety Report 5310371-X (Version None)
Quarter: 2007Q2

REPORT INFORMATION
  Report Type: 
  Country: None (occurrence: None)
  Receive Date: 20070427
  Receipt Date: 20070418
  Transmission Date: 20071010
  Serious: Yes (Disabling, Other)
  Sender: FDA-Public Use
  Company Number: ES-AMGEN-UK220973

PATIENT
  Sex: Male

DRUGS (1)
  1. NEUPOGEN [Suspect]
     Indication: NEUTROPENIA

REACTIONS (4)
  - CAPILLARY LEAK SYNDROME [None]
  - SKIN LESION [None]
  - SKIN OEDEMA [None]
  - WHITE BLOOD CELL COUNT INCREASED [None]
